FAERS Safety Report 20977544 (Version 1)
Quarter: 2022Q2

REPORT INFORMATION
  Report Type: Report from Study
  Country: AR (occurrence: AR)
  Receive Date: 20220618
  Receipt Date: 20220618
  Transmission Date: 20220720
  Serious: Yes (Death, Hospitalization)
  Sender: FDA-Public Use
  Company Number: AR-ABBVIE-22K-007-4403058-00

PATIENT
  Age: 68 Year
  Sex: Male

DRUGS (1)
  1. HUMIRA [Suspect]
     Active Substance: ADALIMUMAB
     Indication: Psoriasis
     Route: 058
     Dates: start: 20131002

REACTIONS (3)
  - Pulmonary oedema [Fatal]
  - Bronchospasm [Fatal]
  - Bronchitis [Fatal]

NARRATIVE: CASE EVENT DATE: 20220510
